FAERS Safety Report 21585056 (Version 7)
Quarter: 2023Q1

REPORT INFORMATION
  Report Type: Report from Study
  Country: CN (occurrence: None)
  Receive Date: 20221111
  Receipt Date: 20230119
  Transmission Date: 20230417
  Serious: Yes (Hospitalization)
  Sender: FDA-Public Use
  Company Number: CN-Eisai Medical Research-EC-2022-127683

PATIENT
  Age: 75 Year
  Sex: Male
  Weight: 74 kg

DRUGS (20)
  1. LENVATINIB [Suspect]
     Active Substance: LENVATINIB
     Indication: Oesophageal cancer metastatic
     Dosage: STARTING DOSE AT 8 MG, FLUCTUATED DOSAGE
     Route: 048
     Dates: start: 20220929, end: 20221103
  2. PEMBROLIZUMAB [Suspect]
     Active Substance: PEMBROLIZUMAB
     Indication: Oesophageal cancer metastatic
     Route: 041
     Dates: start: 20220929, end: 20220929
  3. CISPLATIN [Suspect]
     Active Substance: CISPLATIN
     Indication: Oesophageal cancer metastatic
     Route: 041
     Dates: start: 20220929, end: 20221020
  4. FLUOROURACIL [Suspect]
     Active Substance: FLUOROURACIL
     Indication: Oesophageal cancer metastatic
     Dosage: ON DAYS 1 TO 5
     Route: 041
     Dates: start: 20220930, end: 20221022
  5. FELODIPINE [Concomitant]
     Active Substance: FELODIPINE
     Dates: start: 202203
  6. CARBOHYDRATES\FATTY ACIDS\MINERALS\PROTEIN\VITAMINS [Concomitant]
     Active Substance: CARBOHYDRATES\FATTY ACIDS\MINERALS\PROTEIN\VITAMINS
     Dates: start: 20221001
  7. LEUCOGEN [Concomitant]
     Active Substance: LEUCOGEN
     Dates: start: 20221008, end: 20221127
  8. KANG FU XIN [Concomitant]
     Dates: start: 20221008, end: 20221102
  9. MONTMORILLONITE [Concomitant]
     Active Substance: MONTMORILLONITE
     Dates: start: 20221020, end: 20221020
  10. POTASSIUM CHLORIDE [Concomitant]
     Active Substance: POTASSIUM CHLORIDE
     Route: 042
     Dates: start: 20221020, end: 20221022
  11. MANNITOL [Concomitant]
     Active Substance: MANNITOL
     Dates: start: 20221020, end: 20221022
  12. BACILLUS LICHENIFORMIS CAPSULE,LIVE [Concomitant]
     Dates: start: 20221020, end: 20221020
  13. TORSEMIDE [Concomitant]
     Active Substance: TORSEMIDE
     Dates: start: 20221020, end: 20221022
  14. APREPITANT [Concomitant]
     Active Substance: APREPITANT
     Dates: start: 20221020, end: 20221022
  15. PALONOSETRON HYDROCHLORIDE [Concomitant]
     Active Substance: PALONOSETRON HYDROCHLORIDE
     Dates: start: 20221020, end: 20221022
  16. ILAPRAZOLE [Concomitant]
     Active Substance: ILAPRAZOLE
     Dates: start: 20221020, end: 20221022
  17. ONDANSETRON HYDROCHLORIDE [Concomitant]
     Active Substance: ONDANSETRON HYDROCHLORIDE
     Dates: start: 20221024, end: 20221025
  18. GRANULOCYTE COLONY-STIMULATING FACTOR NOS [Concomitant]
     Active Substance: GRANULOCYTE COLONY-STIMULATING FACTOR NOS
     Dates: start: 20221028, end: 20221031
  19. OPRELVEKIN [Concomitant]
     Active Substance: OPRELVEKIN
     Dates: start: 20221031, end: 20221102
  20. SHENG XUE BAO [Concomitant]
     Dates: start: 20221102, end: 20221110

REACTIONS (2)
  - Atrial fibrillation [Recovered/Resolved]
  - Cardiac failure [Recovering/Resolving]

NARRATIVE: CASE EVENT DATE: 20221103
